FAERS Safety Report 10419943 (Version 3)
Quarter: 2014Q4

REPORT INFORMATION
  Report Type: Spontaneous
  Country: US (occurrence: US)
  Receive Date: 20140829
  Receipt Date: 20141031
  Transmission Date: 20150528
  Serious: Yes (Other)
  Sender: FDA-Public Use
  Company Number: US-TEVA-505686USA

PATIENT
  Age: 26 Year
  Sex: Female
  Weight: 74.91 kg

DRUGS (2)
  1. PARAGARD T380A [Suspect]
     Active Substance: COPPER
     Indication: CONTRACEPTION
     Route: 015
     Dates: start: 20130523, end: 20140827
  2. PARAGARD T380A [Suspect]
     Active Substance: COPPER
     Route: 015
     Dates: start: 20140827

REACTIONS (6)
  - Dyspareunia [Recovered/Resolved]
  - Device dislocation [Unknown]
  - Uterine haemorrhage [Recovered/Resolved]
  - Coital bleeding [Recovered/Resolved]
  - Menorrhagia [Unknown]
  - Metrorrhagia [Recovered/Resolved]

NARRATIVE: CASE EVENT DATE: 20140501
